FAERS Safety Report 8907251 (Version 1)
Quarter: 2012Q4

REPORT INFORMATION
  Report Type: Report from Study
  Country: FR (occurrence: FR)
  Receive Date: 20121114
  Receipt Date: 20121114
  Transmission Date: 20130627
  Serious: Yes (Hospitalization)
  Sender: FDA-Public Use
  Company Number: FR-009507513-1211FRA001380

PATIENT
  Age: 48 Year
  Sex: Female
  Weight: 72.4 kg

DRUGS (8)
  1. VICTRELIS [Suspect]
     Indication: CHRONIC HEPATITIS C
     Dosage: UNK UNK, tid
     Route: 048
     Dates: start: 20120608
  2. RIBAVIRIN [Suspect]
     Indication: CHRONIC HEPATITIS C
     Dosage: 1 DF, Once
     Route: 048
     Dates: start: 20120608
  3. RO5024048 [Suspect]
     Indication: CHRONIC HEPATITIS C
     Dosage: UNK, bid
     Route: 048
     Dates: start: 20120608
  4. PEGINTERFERON ALFA-2A [Suspect]
     Indication: CHRONIC HEPATITIS C
     Dosage: 180 Microgram, UNK
     Route: 058
     Dates: start: 20120608
  5. XANAX [Concomitant]
     Indication: ANXIETY
  6. ZOLPIDEM TARTRATE [Concomitant]
     Indication: INSOMNIA
  7. ACETAMINOPHEN [Concomitant]
     Indication: INFLUENZA LIKE ILLNESS
     Dosage: UNK
     Dates: start: 20120608
  8. GRANOCYTE [Concomitant]
     Indication: NEUTROPENIA
     Dosage: UNK
     Dates: start: 20121026

REACTIONS (1)
  - Thrombocytopenia [Unknown]
